FAERS Safety Report 12257246 (Version 1)
Quarter: 2016Q2

REPORT INFORMATION
  Report Type: Spontaneous
  Country: US (occurrence: None)
  Receive Date: 20160411
  Receipt Date: 20160411
  Transmission Date: 20160815
  Serious: Yes (Life-Threatening, Hospitalization)
  Sender: FDA-Public Use
  Company Number: None

PATIENT
  Age: 21 Year
  Sex: Male
  Weight: 68.04 kg

DRUGS (1)
  1. DIPHENHYDRAMINE. [Suspect]
     Active Substance: DIPHENHYDRAMINE
     Dosage: 375 PILLS OPEN IN ONE BOTTLE?
     Dates: start: 2010, end: 2016

REACTIONS (4)
  - Drug dependence [None]
  - Respiratory arrest [None]
  - Loss of consciousness [None]
  - Intentional overdose [None]

NARRATIVE: CASE EVENT DATE: 20160212
